FAERS Safety Report 5316546-8 (Version None)
Quarter: 2007Q2

REPORT INFORMATION
  Report Type: 
  Country: None (occurrence: None)
  Receive Date: 20070504
  Receipt Date: 20070423
  Transmission Date: 20071010
  Serious: Yes (Hospitalization)
  Sender: FDA-Public Use
  Company Number: TW-JNJFOC-20070307088

PATIENT
  Sex: Male

DRUGS (3)
  1. DECARIS [Suspect]
     Indication: PROPHYLAXIS
     Route: 048
  2. ERYTHROMYCIN [Concomitant]
     Indication: RESPIRATORY DISORDER
     Route: 065
  3. UNKNOWN MEDICATION [Concomitant]
     Indication: RESPIRATORY DISORDER
     Route: 065

REACTIONS (2)
  - HYPERSENSITIVITY [None]
  - VIRAL INFECTION [None]
